FAERS Safety Report 9494883 (Version 1)
Quarter: 2013Q3

REPORT INFORMATION
  Report Type: Spontaneous
  Country: US (occurrence: US)
  Receive Date: 20130903
  Receipt Date: 20130903
  Transmission Date: 20140515
  Serious: No
  Sender: FDA-Public Use
  Company Number: US-009507513-1309USA000617

PATIENT
  Sex: Female

DRUGS (1)
  1. GYNE LOTRIMIN 7 DAY CREAM [Suspect]
     Indication: FUNGAL INFECTION
     Dosage: UNK, UNKNOWN
     Route: 067

REACTIONS (1)
  - Rash generalised [Not Recovered/Not Resolved]
